FAERS Safety Report 18156734 (Version 3)
Quarter: 2021Q2

REPORT INFORMATION
  Report Type: Spontaneous
  Country: US (occurrence: US)
  Receive Date: 20200817
  Receipt Date: 20210430
  Transmission Date: 20210717
  Serious: Yes (Other)
  Sender: FDA-Public Use
  Company Number: US-GILEAD-2020-0490411

PATIENT
  Age: 65 Year
  Sex: Female
  Weight: 46.26 kg

DRUGS (252)
  1. BIKTARVY [Concomitant]
     Active Substance: BICTEGRAVIR SODIUM\EMTRICITABINE\TENOFOVIR ALAFENAMIDE FUMARATE
     Dosage: UNK
     Dates: start: 201804, end: 202002
  2. BIKTARVY [Concomitant]
     Active Substance: BICTEGRAVIR SODIUM\EMTRICITABINE\TENOFOVIR ALAFENAMIDE FUMARATE
     Dosage: UNK
     Dates: start: 202002
  3. NORVIR [Concomitant]
     Active Substance: RITONAVIR
     Dosage: UNK
     Dates: start: 201204, end: 201210
  4. PREZISTA [Concomitant]
     Active Substance: DARUNAVIR ETHANOLATE
     Dosage: UNK
     Dates: start: 201205, end: 201301
  5. PREZISTA [Concomitant]
     Active Substance: DARUNAVIR ETHANOLATE
     Dosage: UNK
     Dates: start: 201512, end: 201601
  6. ABACAVIR. [Concomitant]
     Active Substance: ABACAVIR
     Indication: HIV INFECTION
     Dosage: UNK
     Dates: start: 201906, end: 201907
  7. ARTIFICIAL TEARS [Concomitant]
     Active Substance: GLYCERIN\HYPROMELLOSES\POLYETHYLENE GLYCOL 400
     Dosage: UNK
     Dates: start: 201906, end: 201907
  8. CRESTOR [Concomitant]
     Active Substance: ROSUVASTATIN CALCIUM
     Indication: BLOOD CHOLESTEROL
     Dosage: UNK
     Dates: start: 201506, end: 201606
  9. CRESTOR [Concomitant]
     Active Substance: ROSUVASTATIN CALCIUM
     Dosage: UNK
     Dates: start: 201108, end: 201201
  10. FENTANYL. [Concomitant]
     Active Substance: FENTANYL
     Dosage: UNK
     Dates: start: 201610, end: 201611
  11. FERROUS SULFATE. [Concomitant]
     Active Substance: FERROUS SULFATE
     Indication: ANAEMIA
     Dosage: UNK
     Dates: start: 200904, end: 200905
  12. FLUOROMETHOLONE. [Concomitant]
     Active Substance: FLUOROMETHOLONE
     Indication: EYE DISORDER PROPHYLAXIS
     Dosage: UNK
     Dates: start: 201710, end: 201710
  13. GLYBURIDE. [Concomitant]
     Active Substance: GLYBURIDE
     Indication: DIABETES MELLITUS
     Dosage: UNK
     Dates: start: 200712, end: 200804
  14. KERYDIN [Concomitant]
     Active Substance: TAVABOROLE
     Dosage: UNK
     Dates: start: 201601, end: 201601
  15. METFORMIN [Concomitant]
     Active Substance: METFORMIN HYDROCHLORIDE
     Indication: DIABETES MELLITUS
     Dosage: UNK
     Dates: start: 201205, end: 201601
  16. METHYLPREDNISOLONE. [Concomitant]
     Active Substance: METHYLPREDNISOLONE
     Indication: STEROID THERAPY
     Dosage: UNK
     Dates: start: 201601, end: 201601
  17. MUCINEX [Concomitant]
     Active Substance: GUAIFENESIN
     Dosage: UNK
     Dates: start: 201607, end: 201703
  18. NICOTINAMID [Concomitant]
     Active Substance: NIACINAMIDE
     Dosage: UNK
     Dates: start: 202004, end: 202005
  19. RANITIDINE. [Concomitant]
     Active Substance: RANITIDINE
     Dosage: UNK
  20. RESTASIS [Concomitant]
     Active Substance: CYCLOSPORINE
     Dosage: UNK
     Dates: start: 201601, end: 201703
  21. ROSUVASTATIN. [Concomitant]
     Active Substance: ROSUVASTATIN
     Dosage: UNK
     Dates: start: 201905, end: 202005
  22. SERTRALINE [Concomitant]
     Active Substance: SERTRALINE HYDROCHLORIDE
     Dosage: UNK
     Dates: start: 201303, end: 201405
  23. SERTRALINE [Concomitant]
     Active Substance: SERTRALINE HYDROCHLORIDE
     Dosage: UNK
     Dates: start: 201205, end: 201209
  24. SPIRIVA [Concomitant]
     Active Substance: TIOTROPIUM BROMIDE MONOHYDRATE
     Dosage: UNK
     Dates: start: 201503, end: 201603
  25. SPIRONOLACTONE. [Concomitant]
     Active Substance: SPIRONOLACTONE
     Indication: ASTHMA
     Dosage: UNK
     Dates: start: 201312, end: 201406
  26. TRAMADOL. [Concomitant]
     Active Substance: TRAMADOL
     Dosage: UNK
     Dates: start: 202002
  27. VOLTAREN [DICLOFENAC] [Concomitant]
     Active Substance: DICLOFENAC SODIUM
     Indication: HIV INFECTION
     Dosage: UNK
     Dates: start: 201902, end: 202010
  28. ISENTRESS [Concomitant]
     Active Substance: RALTEGRAVIR POTASSIUM
     Indication: HIV INFECTION
     Dosage: UNK
     Dates: start: 201612, end: 201712
  29. ISENTRESS [Concomitant]
     Active Substance: RALTEGRAVIR POTASSIUM
     Dosage: UNK
     Dates: start: 201205, end: 201301
  30. NORVIR [Concomitant]
     Active Substance: RITONAVIR
     Dosage: UNK
     Dates: start: 201401, end: 201406
  31. PREZISTA [Concomitant]
     Active Substance: DARUNAVIR ETHANOLATE
     Indication: HIV INFECTION
     Dosage: UNK
     Dates: start: 201607, end: 201703
  32. PREZISTA [Concomitant]
     Active Substance: DARUNAVIR ETHANOLATE
     Dosage: UNK
     Dates: start: 201208, end: 201308
  33. PREZISTA [Concomitant]
     Active Substance: DARUNAVIR ETHANOLATE
     Dosage: UNK
     Dates: start: 201906
  34. ALLEGRA [Concomitant]
     Active Substance: FEXOFENADINE HYDROCHLORIDE
     Indication: HYPERSENSITIVITY
  35. AMLODIPINE [Concomitant]
     Active Substance: AMLODIPINE BESYLATE
     Dosage: UNK
     Dates: start: 201607, end: 201703
  36. ASPIRIN [ACETYLSALICYLIC ACID] [Concomitant]
     Active Substance: ASPIRIN
     Dosage: UNK
     Dates: start: 201905, end: 202004
  37. ASPIRIN [ACETYLSALICYLIC ACID] [Concomitant]
     Active Substance: ASPIRIN
     Dosage: UNK
     Dates: start: 201304, end: 201311
  38. BIOTENE DRY MOUTH [SODIUM FLUOROPHOSPHATE] [Concomitant]
     Indication: DRY MOUTH
     Dosage: UNK
     Dates: start: 201309, end: 201309
  39. BUPROPION. [Concomitant]
     Active Substance: BUPROPION
     Indication: DEPRESSION
     Dosage: UNK
     Dates: start: 201902, end: 201909
  40. CYCLOBENZAPRINE. [Concomitant]
     Active Substance: CYCLOBENZAPRINE
     Indication: MUSCLE RELAXANT THERAPY
     Dosage: UNK
     Dates: start: 201810
  41. DONEPEZIL. [Concomitant]
     Active Substance: DONEPEZIL
     Dosage: UNK
     Dates: start: 201110, end: 201205
  42. FENOFIBRATE. [Concomitant]
     Active Substance: FENOFIBRATE
     Dosage: UNK
     Dates: start: 201405, end: 201505
  43. GLUCERNA THERAPEUTIC NUTRITION [Concomitant]
     Indication: DIABETES MELLITUS
     Dosage: UNK
     Dates: start: 201705, end: 202002
  44. GUAIFENESIN. [Concomitant]
     Active Substance: GUAIFENESIN
     Indication: PULMONARY CONGESTION
     Dosage: UNK
     Dates: start: 201308, end: 201310
  45. KETOTIFEN [Concomitant]
     Active Substance: KETOTIFEN
     Indication: ANTIALLERGIC THERAPY
     Dosage: UNK
     Dates: start: 201710, end: 201712
  46. LISINOPRIL. [Concomitant]
     Active Substance: LISINOPRIL
     Indication: HYPERTENSION
     Dosage: UNK
     Dates: start: 201301, end: 201302
  47. LORATADINE. [Concomitant]
     Active Substance: LORATADINE
     Dosage: UNK
     Dates: start: 201806, end: 201809
  48. LOSARTAN. [Concomitant]
     Active Substance: LOSARTAN
     Dosage: UNK
     Dates: start: 201807, end: 201809
  49. MUCINEX [Concomitant]
     Active Substance: GUAIFENESIN
     Dosage: UNK
     Dates: start: 201611, end: 201811
  50. MUCINEX [Concomitant]
     Active Substance: GUAIFENESIN
     Dosage: UNK
     Dates: start: 201308, end: 201312
  51. REGLAN [Concomitant]
     Active Substance: METOCLOPRAMIDE HYDROCHLORIDE
     Indication: GASTROOESOPHAGEAL REFLUX DISEASE
     Dosage: UNK
     Dates: start: 201205, end: 201906
  52. SPIRIVA [Concomitant]
     Active Substance: TIOTROPIUM BROMIDE MONOHYDRATE
     Dosage: UNK
     Dates: start: 201310, end: 201403
  53. TIZANIDINE. [Concomitant]
     Active Substance: TIZANIDINE
     Dosage: UNK
     Dates: start: 201804, end: 201903
  54. TRAMADOL. [Concomitant]
     Active Substance: TRAMADOL
     Indication: PAIN
     Dosage: UNK
     Dates: start: 201308, end: 201312
  55. VOLTAREN [DICLOFENAC] [Concomitant]
     Active Substance: DICLOFENAC SODIUM
     Indication: VITAMIN SUPPLEMENTATION
     Dosage: UNK
     Dates: start: 201709, end: 201712
  56. BIKTARVY [Concomitant]
     Active Substance: BICTEGRAVIR SODIUM\EMTRICITABINE\TENOFOVIR ALAFENAMIDE FUMARATE
     Indication: HIV INFECTION
     Dosage: UNK
     Dates: start: 201906, end: 201907
  57. PREZISTA [Concomitant]
     Active Substance: DARUNAVIR ETHANOLATE
     Dosage: UNK
     Dates: start: 201809, end: 201902
  58. ACETAMINOPHEN. [Concomitant]
     Active Substance: ACETAMINOPHEN
     Indication: PAIN
     Dosage: UNK
     Dates: start: 201803, end: 201909
  59. ACYCLOVIR [ACICLOVIR] [Concomitant]
     Active Substance: ACYCLOVIR
     Dosage: UNK
     Dates: start: 201205, end: 201209
  60. AMLODIPINE [Concomitant]
     Active Substance: AMLODIPINE BESYLATE
     Indication: HYPERTENSION
     Dosage: UNK
     Dates: start: 201604, end: 201612
  61. ASPIRIN [ACETYLSALICYLIC ACID] [Concomitant]
     Active Substance: ASPIRIN
     Indication: PAIN
     Dosage: UNK
     Dates: start: 201504, end: 201505
  62. AZITHROMYCIN ANHYDROUS. [Concomitant]
     Active Substance: AZITHROMYCIN ANHYDROUS
     Dosage: UNK
     Dates: start: 201904, end: 201904
  63. BACITRACIN. [Concomitant]
     Active Substance: BACITRACIN
     Dosage: UNK
     Dates: start: 201906, end: 201906
  64. BECONASE AQ [Concomitant]
     Active Substance: BECLOMETHASONE DIPROPIONATE MONOHYDRATE
     Indication: NASAL CONGESTION
     Dosage: UNK
     Dates: start: 201610, end: 201611
  65. CHANTIX [Concomitant]
     Active Substance: VARENICLINE TARTRATE
     Dosage: UNK
     Dates: start: 201612, end: 201701
  66. CHANTIX [Concomitant]
     Active Substance: VARENICLINE TARTRATE
     Dosage: UNK
     Dates: start: 201202, end: 201303
  67. CRESTOR [Concomitant]
     Active Substance: ROSUVASTATIN CALCIUM
     Dosage: UNK
     Dates: start: 201605, end: 201705
  68. CRESTOR [Concomitant]
     Active Substance: ROSUVASTATIN CALCIUM
     Dosage: UNK
     Dates: start: 201306, end: 201405
  69. DONEPEZIL. [Concomitant]
     Active Substance: DONEPEZIL
     Dosage: UNK
     Dates: start: 201211, end: 201401
  70. FENOFIBRATE. [Concomitant]
     Active Substance: FENOFIBRATE
     Dosage: UNK
     Dates: start: 201504, end: 201603
  71. FENOFIBRATE. [Concomitant]
     Active Substance: FENOFIBRATE
     Dosage: UNK
     Dates: start: 201806, end: 201809
  72. FENOFIBRATE. [Concomitant]
     Active Substance: FENOFIBRATE
     Dosage: UNK
     Dates: start: 201910
  73. FLUOROMETHOLONE. [Concomitant]
     Active Substance: FLUOROMETHOLONE
     Dosage: UNK
     Dates: start: 201906, end: 201906
  74. GUAIFENESIN. [Concomitant]
     Active Substance: GUAIFENESIN
     Dosage: UNK
     Dates: start: 201602, end: 201604
  75. LIPITOR [Concomitant]
     Active Substance: ATORVASTATIN CALCIUM
     Indication: BLOOD CHOLESTEROL INCREASED
     Dosage: UNK
     Dates: start: 201006, end: 201011
  76. LORATADINE. [Concomitant]
     Active Substance: LORATADINE
     Dosage: UNK
     Dates: start: 201205, end: 201212
  77. MUCINEX [Concomitant]
     Active Substance: GUAIFENESIN
     Dosage: UNK
     Dates: start: 201206, end: 201503
  78. NIACIN. [Concomitant]
     Active Substance: NIACIN
     Indication: VITAMIN SUPPLEMENTATION
     Dosage: UNK
     Dates: start: 201202, end: 201202
  79. NICOTINAMID [Concomitant]
     Active Substance: NIACINAMIDE
     Dosage: UNK
     Dates: start: 201601, end: 201602
  80. NICOTINE TRANSDERMAL SYSTEM [Concomitant]
     Active Substance: NICOTINE
  81. OMEPRAZOLE. [Concomitant]
     Active Substance: OMEPRAZOLE
     Dosage: UNK
     Dates: start: 201909, end: 202003
  82. PEG 3350 [Concomitant]
     Active Substance: POLYETHYLENE GLYCOL 3350
     Dosage: UNK
     Dates: start: 201512
  83. REGLAN [Concomitant]
     Active Substance: METOCLOPRAMIDE HYDROCHLORIDE
     Dosage: UNK
     Dates: start: 201906
  84. RESTASIS [Concomitant]
     Active Substance: CYCLOSPORINE
     Indication: DRY EYE
     Dosage: UNK
     Dates: start: 201506, end: 201607
  85. REYATAZ [Concomitant]
     Active Substance: ATAZANAVIR SULFATE
  86. ROSUVASTATIN. [Concomitant]
     Active Substance: ROSUVASTATIN
     Dosage: UNK
     Dates: start: 201806, end: 201905
  87. SPIRIVA [Concomitant]
     Active Substance: TIOTROPIUM BROMIDE MONOHYDRATE
     Dosage: UNK
     Dates: start: 201604, end: 201701
  88. SPIRIVA [Concomitant]
     Active Substance: TIOTROPIUM BROMIDE MONOHYDRATE
     Dosage: UNK
     Dates: start: 201506, end: 202007
  89. TIOTROPIUM [Concomitant]
     Active Substance: TIOTROPIUM
     Indication: ASTHMA
     Dosage: UNK
  90. TRAMADOL. [Concomitant]
     Active Substance: TRAMADOL
     Dosage: UNK
     Dates: start: 201905, end: 201909
  91. TRAMADOL. [Concomitant]
     Active Substance: TRAMADOL
     Dosage: UNK
     Dates: start: 201212, end: 201506
  92. TRICOR [ADENOSINE] [Concomitant]
     Active Substance: ADENOSINE
     Dosage: UNK
     Dates: start: 201306, end: 201312
  93. UBIDECARENONE. [Concomitant]
     Active Substance: UBIDECARENONE
     Indication: HIV INFECTION
     Dosage: UNK
  94. VOLTAREN [DICLOFENAC] [Concomitant]
     Active Substance: DICLOFENAC SODIUM
     Dosage: UNK
     Dates: start: 201807, end: 202003
  95. ZIAGEN [Concomitant]
     Active Substance: ABACAVIR SULFATE
     Indication: ARTHRITIS
     Dosage: UNK
     Route: 065
     Dates: start: 201908, end: 201909
  96. ZOLPIDEM [Concomitant]
     Active Substance: ZOLPIDEM TARTRATE
     Dosage: UNK
     Dates: start: 201205, end: 201504
  97. ISENTRESS [Concomitant]
     Active Substance: RALTEGRAVIR POTASSIUM
     Dosage: UNK
     Dates: start: 201604, end: 201704
  98. NORVIR [Concomitant]
     Active Substance: RITONAVIR
     Dosage: UNK
     Dates: start: 201401, end: 201906
  99. ALBUTEROL [SALBUTAMOL] [Concomitant]
     Active Substance: ALBUTEROL
     Indication: ASTHMA
     Dosage: UNK
     Dates: start: 201609, end: 201708
  100. ALBUTEROL [SALBUTAMOL] [Concomitant]
     Active Substance: ALBUTEROL
     Dosage: UNK
     Dates: start: 201808
  101. AMLODIPINE [Concomitant]
     Active Substance: AMLODIPINE BESYLATE
     Dosage: UNK
     Dates: start: 201703, end: 201910
  102. AMOX [AMOXICILLIN TRIHYDRATE] [Concomitant]
     Indication: ANTIBIOTIC THERAPY
     Dosage: UNK
     Dates: start: 201609, end: 201610
  103. AMOXICILINA CLAV [AMOXICILLIN TRIHYDRATE;CLAVULANATE POTASSIUM] [Concomitant]
     Active Substance: AMOXICILLIN\CLAVULANATE POTASSIUM
     Dosage: UNK
     Dates: start: 201609, end: 201609
  104. ARTIFICIAL TEARS [Concomitant]
     Active Substance: GLYCERIN\HYPROMELLOSES\POLYETHYLENE GLYCOL 400
     Indication: DRY EYE
     Dosage: UNK
     Dates: start: 201108, end: 201108
  105. ASPIRIN [ACETYLSALICYLIC ACID] [Concomitant]
     Active Substance: ASPIRIN
     Dosage: UNK
     Dates: start: 201706, end: 201809
  106. ASPIRIN [ACETYLSALICYLIC ACID] [Concomitant]
     Active Substance: ASPIRIN
     Dosage: UNK
     Dates: start: 201205, end: 201309
  107. CHANTIX [Concomitant]
     Active Substance: VARENICLINE TARTRATE
     Dosage: UNK
     Dates: start: 201208, end: 201209
  108. DOCUSATE SODIUM. [Concomitant]
     Active Substance: DOCUSATE SODIUM
     Indication: CONSTIPATION
     Dosage: UNK
     Dates: start: 201007, end: 201009
  109. DONEPEZIL. [Concomitant]
     Active Substance: DONEPEZIL
     Indication: DEMENTIA
     Dosage: UNK
     Dates: start: 201311, end: 201501
  110. FISH OIL [Concomitant]
     Active Substance: FISH OIL
     Indication: VITAMIN SUPPLEMENTATION
     Dosage: UNK
     Dates: start: 201108, end: 201108
  111. FLECTOR EP [Concomitant]
     Active Substance: DICLOFENAC EPOLAMINE
     Indication: PAIN
     Dosage: UNK
     Dates: start: 201906, end: 201912
  112. KETOTIFEN [Concomitant]
     Active Substance: KETOTIFEN
     Dosage: UNK
     Dates: start: 201906, end: 201906
  113. KLOR?CON [Concomitant]
     Active Substance: POTASSIUM CHLORIDE
  114. LORATADINE. [Concomitant]
     Active Substance: LORATADINE
     Dosage: UNK
     Dates: start: 201406, end: 201509
  115. MARINOL [ALLOPURINOL] [Concomitant]
     Active Substance: ALLOPURINOL
     Indication: DECREASED APPETITE
     Dosage: UNK
  116. METFORMIN [Concomitant]
     Active Substance: METFORMIN HYDROCHLORIDE
     Dosage: UNK
     Dates: start: 201205, end: 201308
  117. MUCINEX [Concomitant]
     Active Substance: GUAIFENESIN
     Dosage: UNK
     Dates: start: 201906
  118. OMEPRAZOLE. [Concomitant]
     Active Substance: OMEPRAZOLE
     Indication: GASTROOESOPHAGEAL REFLUX DISEASE
     Dosage: UNK
     Dates: start: 201810, end: 201907
  119. POTASSIUM [Concomitant]
     Active Substance: POTASSIUM
     Dosage: UNK
     Dates: start: 201601, end: 201601
  120. RANITIDINE. [Concomitant]
     Active Substance: RANITIDINE
     Indication: GASTROOESOPHAGEAL REFLUX DISEASE
     Dosage: UNK
     Dates: start: 201307
  121. RITONAVIR. [Concomitant]
     Active Substance: RITONAVIR
     Dosage: UNK
     Dates: start: 201905
  122. SPIRIVA [Concomitant]
     Active Substance: TIOTROPIUM BROMIDE MONOHYDRATE
     Dosage: UNK
     Dates: start: 202005, end: 202006
  123. TRAMADOL. [Concomitant]
     Active Substance: TRAMADOL
     Dosage: UNK
     Dates: start: 201910, end: 202002
  124. VITAMIN D [COLECALCIFEROL] [Concomitant]
     Active Substance: CHOLECALCIFEROL
     Indication: HIV INFECTION
     Dosage: UNK
     Dates: start: 201703, end: 201704
  125. ZOLPIDEM [Concomitant]
     Active Substance: ZOLPIDEM TARTRATE
     Indication: SLEEP DISORDER
     Dosage: UNK
     Dates: start: 201408
  126. ISENTRESS [Concomitant]
     Active Substance: RALTEGRAVIR POTASSIUM
     Dosage: UNK
     Dates: start: 201406, end: 201412
  127. NORVIR [Concomitant]
     Active Substance: RITONAVIR
     Indication: HIV INFECTION
     Dosage: UNK
     Dates: start: 201207, end: 201309
  128. NORVIR [Concomitant]
     Active Substance: RITONAVIR
     Dosage: UNK
     Dates: start: 201906
  129. ACYCLOVIR [ACICLOVIR] [Concomitant]
     Active Substance: ACYCLOVIR
     Dosage: UNK
     Dates: start: 201909
  130. ACYCLOVIR [ACICLOVIR] [Concomitant]
     Active Substance: ACYCLOVIR
     Dosage: UNK
     Dates: start: 201207, end: 201307
  131. CALCIUM [Concomitant]
     Active Substance: CALCIUM
     Indication: MINERAL SUPPLEMENTATION
     Dosage: UNK
     Dates: start: 201710, end: 201804
  132. CARVEDILOL. [Concomitant]
     Active Substance: CARVEDILOL
     Indication: HYPERTENSION
     Dosage: UNK
     Dates: start: 200910, end: 200911
  133. CHANTIX [Concomitant]
     Active Substance: VARENICLINE TARTRATE
     Dosage: UNK
     Dates: start: 201612, end: 201701
  134. COLACE [Concomitant]
     Active Substance: DOCUSATE SODIUM
     Dosage: UNK
     Dates: start: 201910, end: 202007
  135. CRESTOR [Concomitant]
     Active Substance: ROSUVASTATIN CALCIUM
     Dosage: UNK
     Dates: start: 201301, end: 201605
  136. DIPHENHYDRAMINE. [Concomitant]
     Active Substance: DIPHENHYDRAMINE
     Indication: ANTIALLERGIC THERAPY
     Dosage: UNK
     Dates: start: 201209, end: 201209
  137. DONEPEZIL. [Concomitant]
     Active Substance: DONEPEZIL
     Dosage: UNK
     Dates: start: 201108, end: 201108
  138. ENULOSE [Concomitant]
     Active Substance: LACTULOSE
     Indication: LIVER DISORDER
     Dosage: UNK
  139. FENOFIBRATE. [Concomitant]
     Active Substance: FENOFIBRATE
     Indication: BLOOD CHOLESTEROL INCREASED
     Dosage: UNK
     Dates: start: 201301, end: 201306
  140. FENTANYL. [Concomitant]
     Active Substance: FENTANYL
     Indication: PAIN
     Dosage: UNK
     Dates: start: 201708, end: 201709
  141. HYDROMORPHONE HCL [Concomitant]
     Active Substance: HYDROMORPHONE HYDROCHLORIDE
     Indication: PAIN
     Dosage: UNK
     Dates: start: 201504, end: 201504
  142. LORATADINE. [Concomitant]
     Active Substance: LORATADINE
     Dosage: UNK
     Dates: start: 201307, end: 201409
  143. MELATONIN [Concomitant]
     Active Substance: MELATONIN
     Indication: SLEEP DISORDER
     Dosage: UNK
     Dates: start: 201705, end: 201708
  144. MELATONIN [Concomitant]
     Active Substance: MELATONIN
     Dosage: UNK
     Dates: start: 201708
  145. METOPROLOL. [Concomitant]
     Active Substance: METOPROLOL
     Indication: HYPERTENSION
     Dosage: UNK
     Dates: start: 201803, end: 201809
  146. MUCINEX [Concomitant]
     Active Substance: GUAIFENESIN
     Dosage: UNK
     Dates: start: 201108, end: 201302
  147. MUCINEX [Concomitant]
     Active Substance: GUAIFENESIN
     Dosage: UNK
     Dates: start: 201505, end: 201512
  148. NICOTINAMID [Concomitant]
     Active Substance: NIACINAMIDE
     Dosage: UNK
     Dates: start: 201904, end: 202008
  149. NICOTINAMID [Concomitant]
     Active Substance: NIACINAMIDE
     Dosage: UNK
     Dates: start: 201910, end: 201911
  150. POTASSIUM [Concomitant]
     Active Substance: POTASSIUM
     Indication: BLOOD POTASSIUM DECREASED
     Dosage: UNK
     Dates: start: 201109, end: 201206
  151. TIZANIDINE. [Concomitant]
     Active Substance: TIZANIDINE
     Indication: ASTHMA
     Dosage: UNK
     Dates: start: 201809, end: 201811
  152. ZOLPIDEM [Concomitant]
     Active Substance: ZOLPIDEM TARTRATE
     Dosage: UNK
     Dates: start: 201205, end: 201305
  153. NORVIR [Concomitant]
     Active Substance: RITONAVIR
     Dosage: UNK
     Dates: start: 201508, end: 201510
  154. PREZISTA [Concomitant]
     Active Substance: DARUNAVIR ETHANOLATE
     Dosage: UNK
     Dates: start: 201312, end: 201511
  155. PREZISTA [Concomitant]
     Active Substance: DARUNAVIR ETHANOLATE
     Dosage: UNK
     Dates: start: 201604, end: 201605
  156. ACYCLOVIR [ACICLOVIR] [Concomitant]
     Active Substance: ACYCLOVIR
     Indication: VIRAL INFECTION
     Dosage: UNK
     Dates: start: 201205, end: 201812
  157. AMLODIPINE BESYLATE. [Concomitant]
     Active Substance: AMLODIPINE BESYLATE
     Dosage: UNK
     Dates: start: 201412, end: 201611
  158. ARICEPT [Concomitant]
     Active Substance: DONEPEZIL HYDROCHLORIDE
     Indication: DEMENTIA ALZHEIMER^S TYPE
     Dosage: UNK
     Dates: start: 201108, end: 201110
  159. AZITHROMYCIN ANHYDROUS. [Concomitant]
     Active Substance: AZITHROMYCIN ANHYDROUS
     Dosage: UNK
     Dates: start: 201905, end: 201905
  160. BACITRACIN. [Concomitant]
     Active Substance: BACITRACIN
     Dosage: UNK
     Dates: start: 201812, end: 201901
  161. CHANTIX [Concomitant]
     Active Substance: VARENICLINE TARTRATE
     Indication: EX-TOBACCO USER
     Dosage: UNK
     Dates: start: 201609, end: 201803
  162. COMBIVENT [Concomitant]
     Active Substance: ALBUTEROL SULFATE\IPRATROPIUM BROMIDE
     Indication: CHRONIC OBSTRUCTIVE PULMONARY DISEASE
     Dosage: UNK
     Dates: start: 200910, end: 200911
  163. DICLOFENAC EPOLAMINE [Concomitant]
     Active Substance: DICLOFENAC EPOLAMINE
     Indication: INFLAMMATION
     Dosage: UNK
     Dates: start: 201906
  164. FENOFIBRATE. [Concomitant]
     Active Substance: FENOFIBRATE
     Dosage: UNK
     Dates: start: 201607, end: 201707
  165. FENOFIBRATE. [Concomitant]
     Active Substance: FENOFIBRATE
     Dosage: UNK
     Dates: start: 201301, end: 201308
  166. KERYDIN [Concomitant]
     Active Substance: TAVABOROLE
     Indication: ANTIFUNGAL TREATMENT
     Dosage: UNK
     Dates: start: 201609, end: 201610
  167. LIDOCAINE. [Concomitant]
     Active Substance: LIDOCAINE
     Indication: PAIN
     Dosage: UNK
     Dates: start: 201708, end: 201709
  168. LORATADINE. [Concomitant]
     Active Substance: LORATADINE
     Indication: HYPERSENSITIVITY
     Dosage: UNK
     Dates: start: 201607, end: 201707
  169. LORATADINE. [Concomitant]
     Active Substance: LORATADINE
     Dosage: UNK
     Dates: start: 201108, end: 201204
  170. MEGESTROL ACETATE. [Concomitant]
     Active Substance: MEGESTROL ACETATE
     Indication: BREAST CANCER
     Dosage: UNK
     Dates: start: 201902, end: 201904
  171. MELATONIN [Concomitant]
     Active Substance: MELATONIN
     Dosage: UNK
     Dates: start: 201708, end: 201711
  172. METHYLPREDNISOLONE. [Concomitant]
     Active Substance: METHYLPREDNISOLONE
     Indication: INFLAMMATION
     Dosage: UNK
     Dates: start: 201904, end: 201904
  173. NICOTINAMID [Concomitant]
     Active Substance: NIACINAMIDE
     Indication: EX-TOBACCO USER
     Dosage: UNK
     Dates: start: 201906, end: 202007
  174. RESTASIS [Concomitant]
     Active Substance: CYCLOSPORINE
     Dosage: UNK
     Dates: start: 201408, end: 201507
  175. ROSUVASTATIN. [Concomitant]
     Active Substance: ROSUVASTATIN
     Indication: BLOOD CHOLESTEROL INCREASED
     Dosage: UNK
     Dates: start: 201706, end: 201806
  176. SPIRIVA [Concomitant]
     Active Substance: TIOTROPIUM BROMIDE MONOHYDRATE
     Dosage: UNK
     Dates: start: 201301, end: 201409
  177. TRAMADOL. [Concomitant]
     Active Substance: TRAMADOL
     Indication: CHRONIC OBSTRUCTIVE PULMONARY DISEASE
     Dosage: UNK
     Dates: start: 201401, end: 201401
  178. TRAMADOL. [Concomitant]
     Active Substance: TRAMADOL
     Indication: MUSCLE RELAXANT THERAPY
     Dosage: UNK
     Dates: start: 201501, end: 201502
  179. TRAMADOL. [Concomitant]
     Active Substance: TRAMADOL
     Dosage: UNK
     Dates: start: 201603, end: 201608
  180. VITAMIN D3 [Concomitant]
     Active Substance: CHOLECALCIFEROL
     Indication: HIV INFECTION
     Dosage: UNK
     Dates: start: 201603, end: 201607
  181. VOLTAREN [DICLOFENAC] [Concomitant]
     Active Substance: DICLOFENAC SODIUM
     Dosage: UNK
     Dates: start: 201909, end: 201912
  182. ZOLOFT [Concomitant]
     Active Substance: SERTRALINE HYDROCHLORIDE
     Indication: ARTHRITIS
     Dosage: UNK
     Route: 065
     Dates: start: 201205, end: 201605
  183. ZOLPIDEM [Concomitant]
     Active Substance: ZOLPIDEM TARTRATE
     Indication: ARTHRITIS
     Dosage: UNK
     Dates: start: 201501, end: 201502
  184. TRUVADA [Suspect]
     Active Substance: EMTRICITABINE\TENOFOVIR DISOPROXIL FUMARATE
     Indication: HIV INFECTION
     Dosage: UNK
     Route: 048
     Dates: start: 2013
  185. BIKTARVY [Concomitant]
     Active Substance: BICTEGRAVIR SODIUM\EMTRICITABINE\TENOFOVIR ALAFENAMIDE FUMARATE
     Dosage: UNK
     Dates: start: 201804, end: 202002
  186. ISENTRESS [Concomitant]
     Active Substance: RALTEGRAVIR POTASSIUM
     Dosage: UNK
     Dates: start: 201208, end: 201502
  187. ISENTRESS [Concomitant]
     Active Substance: RALTEGRAVIR POTASSIUM
     Dosage: UNK
     Dates: start: 201607, end: 201707
  188. ISENTRESS [Concomitant]
     Active Substance: RALTEGRAVIR POTASSIUM
     Dosage: UNK
     Dates: start: 201612, end: 201706
  189. AMOX [AMOXICILLIN TRIHYDRATE] [Concomitant]
     Dosage: UNK
     Dates: start: 201706, end: 201707
  190. AMOXICILINA CLAV [AMOXICILLIN TRIHYDRATE;CLAVULANATE POTASSIUM] [Concomitant]
     Active Substance: AMOXICILLIN\CLAVULANATE POTASSIUM
     Indication: ANTIBIOTIC THERAPY
     Dosage: UNK
     Dates: start: 201512, end: 201512
  191. ASACOL HD [Concomitant]
     Active Substance: MESALAMINE
     Indication: COLITIS
     Dosage: UNK
     Dates: start: 201108, end: 201309
  192. AZITHROMYCIN ANHYDROUS. [Concomitant]
     Active Substance: AZITHROMYCIN ANHYDROUS
     Indication: BACTERIAL INFECTION
     Dosage: UNK
     Dates: start: 200910, end: 200911
  193. BACITRACIN. [Concomitant]
     Active Substance: BACITRACIN
     Indication: ANTIBIOTIC THERAPY
     Dosage: UNK
     Dates: start: 201710, end: 201710
  194. BISACODYL. [Concomitant]
     Active Substance: BISACODYL
     Indication: CONSTIPATION
     Dosage: UNK
     Dates: start: 201106, end: 201106
  195. COLACE [Concomitant]
     Active Substance: DOCUSATE SODIUM
     Indication: CONSTIPATION
     Dosage: UNK
     Dates: start: 201906, end: 201909
  196. DONEPEZIL. [Concomitant]
     Active Substance: DONEPEZIL
     Dosage: UNK
     Dates: start: 201204, end: 201304
  197. FENOFIBRATE. [Concomitant]
     Active Substance: FENOFIBRATE
     Dosage: UNK
     Dates: start: 201405, end: 201906
  198. FENOFIBRATE. [Concomitant]
     Active Substance: FENOFIBRATE
     Dosage: UNK
     Dates: start: 201405, end: 201906
  199. FLUTICASONE. [Concomitant]
     Active Substance: FLUTICASONE
     Indication: NASAL CONGESTION
     Dosage: UNK
     Dates: start: 201609, end: 201703
  200. GUAIFENESIN. [Concomitant]
     Active Substance: GUAIFENESIN
     Dosage: UNK
     Dates: start: 201606, end: 201908
  201. GUAIFENESIN. [Concomitant]
     Active Substance: GUAIFENESIN
     Dosage: UNK
     Dates: start: 201309, end: 201311
  202. HYDROCHLOROTHIAZIDE. [Concomitant]
     Active Substance: HYDROCHLOROTHIAZIDE
     Indication: DIURETIC THERAPY
     Dosage: UNK
     Dates: start: 201108, end: 201108
  203. IBUPROFEN. [Concomitant]
     Active Substance: IBUPROFEN
     Indication: PAIN
     Dosage: UNK
     Dates: start: 201708, end: 201709
  204. LORATADINE. [Concomitant]
     Active Substance: LORATADINE
     Dosage: UNK
     Dates: start: 201808, end: 201811
  205. METOCLOPRAMIDE. [Concomitant]
     Active Substance: METOCLOPRAMIDE
  206. MIRTAZAPINE. [Concomitant]
     Active Substance: MIRTAZAPINE
     Indication: DEPRESSION
     Dosage: UNK
     Dates: start: 201604, end: 201803
  207. MUCINEX [Concomitant]
     Active Substance: GUAIFENESIN
     Indication: PULMONARY CONGESTION
     Dosage: UNK
     Dates: start: 201601, end: 201601
  208. MUCINEX [Concomitant]
     Active Substance: GUAIFENESIN
     Dosage: UNK
     Dates: start: 201907, end: 201909
  209. MUCINEX [Concomitant]
     Active Substance: GUAIFENESIN
     Dosage: UNK
     Dates: start: 202002, end: 202003
  210. NAPROXEN. [Concomitant]
     Active Substance: NAPROXEN
     Indication: PAIN
     Dosage: UNK
     Dates: start: 201110, end: 201112
  211. NIASPAN [Concomitant]
     Active Substance: NIACIN
  212. OXYCODONE [Concomitant]
     Active Substance: OXYCODONE
     Indication: PAIN
     Dosage: UNK
     Dates: start: 201510, end: 201510
  213. PEG 3350 [Concomitant]
     Active Substance: POLYETHYLENE GLYCOL 3350
     Indication: CONSTIPATION
     Dosage: UNK
     Dates: start: 201903
  214. PREDNISONE. [Concomitant]
     Active Substance: PREDNISONE
     Indication: INFLAMMATION
     Dosage: UNK
     Dates: start: 201601, end: 201601
  215. PROAIR HFA [Concomitant]
     Active Substance: ALBUTEROL SULFATE
     Dosage: UNK
     Dates: start: 201906
  216. RESTASIS [Concomitant]
     Active Substance: CYCLOSPORINE
     Dosage: UNK
     Dates: start: 201503, end: 201503
  217. RESTASIS [Concomitant]
     Active Substance: CYCLOSPORINE
     Dosage: UNK
     Dates: start: 201508, end: 201604
  218. SPIRIVA [Concomitant]
     Active Substance: TIOTROPIUM BROMIDE MONOHYDRATE
     Indication: ASTHMA
     Dosage: UNK
     Dates: start: 201502, end: 201503
  219. TIZANIDINE. [Concomitant]
     Active Substance: TIZANIDINE
     Dosage: UNK
     Dates: start: 201809, end: 201811
  220. TRAMADOL. [Concomitant]
     Active Substance: TRAMADOL
     Dosage: UNK
     Dates: start: 201401, end: 201603
  221. VITAMIN D3 [Concomitant]
     Active Substance: CHOLECALCIFEROL
     Indication: CARDIAC FAILURE CONGESTIVE
     Dosage: UNK
     Dates: start: 201703, end: 201704
  222. TRUVADA [Suspect]
     Active Substance: EMTRICITABINE\TENOFOVIR DISOPROXIL FUMARATE
     Dosage: UNK
     Route: 048
     Dates: start: 200911, end: 20180502
  223. VIREAD [Suspect]
     Active Substance: TENOFOVIR DISOPROXIL FUMARATE
     Indication: HIV INFECTION
     Dosage: UNK
     Route: 048
     Dates: start: 2004, end: 200508
  224. BIKTARVY [Concomitant]
     Active Substance: BICTEGRAVIR SODIUM\EMTRICITABINE\TENOFOVIR ALAFENAMIDE FUMARATE
     Dosage: UNK
     Dates: start: 202004
  225. ISENTRESS [Concomitant]
     Active Substance: RALTEGRAVIR POTASSIUM
     Dosage: UNK
     Dates: start: 201504, end: 201512
  226. PREZISTA [Concomitant]
     Active Substance: DARUNAVIR ETHANOLATE
     Dosage: UNK
     Dates: start: 201512, end: 201602
  227. AMLODIPINE [Concomitant]
     Active Substance: AMLODIPINE BESYLATE
     Dosage: UNK
     Dates: start: 201508, end: 201511
  228. AMLODIPINE BESYLATE. [Concomitant]
     Active Substance: AMLODIPINE BESYLATE
     Indication: HYPERTENSION
     Dosage: UNK
     Dates: start: 201409, end: 201409
  229. AMLODIPINE BESYLATE. [Concomitant]
     Active Substance: AMLODIPINE BESYLATE
     Dosage: UNK
     Dates: start: 201303, end: 201309
  230. AVANDIA [Concomitant]
     Active Substance: ROSIGLITAZONE MALEATE
     Indication: DIABETES MELLITUS
     Dosage: UNK
  231. DOCUSATE SODIUM. [Concomitant]
     Active Substance: DOCUSATE SODIUM
     Dosage: UNK
     Dates: start: 202002, end: 202004
  232. EPIVIR [Concomitant]
     Active Substance: LAMIVUDINE
     Indication: HIV INFECTION
     Dosage: UNK
  233. FENTANYL. [Concomitant]
     Active Substance: FENTANYL
     Dosage: UNK
     Dates: start: 201304, end: 201304
  234. KERYDIN [Concomitant]
     Active Substance: TAVABOROLE
     Dosage: UNK
     Dates: start: 201601, end: 201602
  235. LORATADINE. [Concomitant]
     Active Substance: LORATADINE
     Dosage: UNK
     Dates: start: 201211, end: 201305
  236. LOSARTAN. [Concomitant]
     Active Substance: LOSARTAN
     Indication: HYPERTENSION
     Dosage: UNK
     Dates: start: 201905
  237. LOVAZA [Concomitant]
     Active Substance: OMEGA-3-ACID ETHYL ESTERS
     Indication: BLOOD CHOLESTEROL
     Dosage: UNK
     Dates: start: 200909, end: 200909
  238. METOPROLOL. [Concomitant]
     Active Substance: METOPROLOL
     Dosage: UNK
     Dates: start: 201902, end: 202002
  239. OXYCONTIN [Concomitant]
     Active Substance: OXYCODONE HYDROCHLORIDE
  240. PROAIR HFA [Concomitant]
     Active Substance: ALBUTEROL SULFATE
     Indication: ASTHMA
     Dosage: UNK
     Dates: start: 201205, end: 201309
  241. RESTASIS [Concomitant]
     Active Substance: CYCLOSPORINE
     Dosage: UNK
     Dates: start: 201607
  242. RITONAVIR. [Concomitant]
     Active Substance: RITONAVIR
     Indication: HIV INFECTION
     Dosage: UNK
     Dates: start: 201706, end: 201905
  243. SERTRALINE [Concomitant]
     Active Substance: SERTRALINE HYDROCHLORIDE
     Indication: ANXIETY
     Dosage: UNK
     Dates: start: 201707, end: 201810
  244. SERTRALINE [Concomitant]
     Active Substance: SERTRALINE HYDROCHLORIDE
     Dosage: UNK
     Dates: start: 201208, end: 201302
  245. SERTRALINE [Concomitant]
     Active Substance: SERTRALINE HYDROCHLORIDE
     Dosage: UNK
     Dates: start: 201607, end: 201709
  246. SIMVASTATIN. [Concomitant]
     Active Substance: SIMVASTATIN
     Indication: BLOOD CHOLESTEROL INCREASED
     Dosage: UNK
     Dates: start: 200911, end: 201002
  247. SPIRIVA [Concomitant]
     Active Substance: TIOTROPIUM BROMIDE MONOHYDRATE
     Dosage: UNK
     Dates: start: 201208, end: 201212
  248. TRAMADOL. [Concomitant]
     Active Substance: TRAMADOL
     Dosage: UNK
     Dates: start: 201608, end: 201906
  249. TRAMADOL. [Concomitant]
     Active Substance: TRAMADOL
     Dosage: UNK
     Dates: start: 201108, end: 201504
  250. TRAMADOL. [Concomitant]
     Active Substance: TRAMADOL
     Dosage: UNK
     Dates: start: 201309, end: 201312
  251. TRICOR [ADENOSINE] [Concomitant]
     Active Substance: ADENOSINE
     Indication: PAIN
     Dosage: UNK
     Dates: start: 201306, end: 201405
  252. ZOLPIDEM [Concomitant]
     Active Substance: ZOLPIDEM TARTRATE
     Dosage: UNK
     Dates: start: 201304, end: 201310

REACTIONS (7)
  - Emotional distress [Not Recovered/Not Resolved]
  - Anhedonia [Not Recovered/Not Resolved]
  - Osteoporosis [Unknown]
  - Pain [Not Recovered/Not Resolved]
  - Chronic kidney disease [Recovered/Resolved]
  - Osteopenia [Not Recovered/Not Resolved]
  - Anxiety [Not Recovered/Not Resolved]

NARRATIVE: CASE EVENT DATE: 201611
